FAERS Safety Report 4531039-3 (Version None)
Quarter: 2004Q4

REPORT INFORMATION
  Report Type: 
  Country: None (occurrence: None)
  Receive Date: 20041126
  Receipt Date: 20040920
  Transmission Date: 20050328
  Serious: No
  Sender: FDA-Public Use
  Company Number: SU-2004-002522

PATIENT
  Age: 80 Year
  Sex: Male
  Weight: 64.4108 kg

DRUGS (4)
  1. BENICAR [Suspect]
     Indication: HYPERTENSION
     Dosage: 20 MG QD PO
     Route: 048
     Dates: start: 20040116, end: 20040101
  2. PREDNISONE TAB [Concomitant]
  3. ALBUTEROL [Concomitant]
  4. ADVAIR DISKUS 100/50 [Concomitant]

REACTIONS (2)
  - ABASIA [None]
  - PAIN IN EXTREMITY [None]
